FAERS Safety Report 7229232-4 (Version None)
Quarter: 2011Q1

REPORT INFORMATION
  Report Type: 
  Country: None (occurrence: None)
  Receive Date: 20110117
  Receipt Date: 20110104
  Transmission Date: 20110831
  Serious: Yes (Other)
  Sender: FDA-Public Use
  Company Number: CH-ELI_LILLY_AND_COMPANY-CH201010004629

PATIENT
  Age: 48 Year
  Sex: Female

DRUGS (3)
  1. TEMESTA [Concomitant]
     Indication: ANXIETY
     Dosage: 5 MG, DAILY (1/D)
     Route: 048
     Dates: start: 20100101
  2. SIRDALUD [Concomitant]
     Indication: TENSION
     Dosage: 4 MG, DAILY (1/D)
     Route: 048
     Dates: start: 20100101
  3. CYMBALTA [Suspect]
     Indication: DEPRESSION
     Dosage: 90 MG, DAILY (1/D)
     Route: 048
     Dates: start: 20100101

REACTIONS (1)
  - DRUG EXPOSURE DURING PREGNANCY [None]
